FAERS Safety Report 7070907-8 (Version None)
Quarter: 2010Q4

REPORT INFORMATION
  Report Type: 
  Country: None (occurrence: None)
  Receive Date: 20101029
  Receipt Date: 20101018
  Transmission Date: 20110411
  Serious: Yes (Other)
  Sender: FDA-Public Use
  Company Number: PHFR2010GB02509

PATIENT
  Sex: Female

DRUGS (2)
  1. CLOZARIL [Suspect]
     Indication: SCHIZOAFFECTIVE DISORDER
     Dosage: 250 MG, QD
     Route: 048
     Dates: start: 20071116
  2. DEPAKOTE [Concomitant]
     Dosage: 2 G, UNK
     Route: 048

REACTIONS (3)
  - MYELOCYTE PRESENT [None]
  - NEUTROPENIA [None]
  - THROMBOCYTOPENIA [None]
